FAERS Safety Report 7420926-4 (Version None)
Quarter: 2011Q2

REPORT INFORMATION
  Report Type: 
  Country: None (occurrence: None)
  Receive Date: 20110418
  Receipt Date: 20110411
  Transmission Date: 20111010
  Serious: Yes (Other)
  Sender: FDA-Public Use
  Company Number: B0712870A

PATIENT
  Age: 5 Year
  Sex: Female

DRUGS (2)
  1. FLUTIDE DISKUS [Suspect]
     Route: 055
  2. BUDESONIDE [Concomitant]
     Route: 065

REACTIONS (2)
  - ADRENAL INSUFFICIENCY [None]
  - BLOOD CORTISOL DECREASED [None]
